FAERS Safety Report 7519980-0 (Version None)
Quarter: 2011Q2

REPORT INFORMATION
  Report Type: 
  Country: None (occurrence: None)
  Receive Date: 20110602
  Receipt Date: 20110520
  Transmission Date: 20111010
  Serious: Yes (Death, Hospitalization)
  Sender: FDA-Public Use
  Company Number: US-CELGENEUS-163-21880-11042732

PATIENT
  Sex: Male

DRUGS (20)
  1. TYLENOL-500 [Concomitant]
  2. ASCORBIC ACID [Concomitant]
     Dosage: 500 MILLIGRAM
     Route: 048
  3. AUGMENTIN '125' [Concomitant]
     Indication: CELLULITIS
     Route: 065
  4. IPRATROPIUM BROMIDE AND ALBUTEROL SULFATE [Concomitant]
     Dosage: 0.5MG/2.50MG 3ML
  5. FUROSEMIDE [Concomitant]
     Dosage: 20 MILLIGRAM
     Route: 048
  6. MAALOX [Concomitant]
     Dosage: 225-200MG/5ML
     Route: 048
  7. RED BLOOD CELLS [Concomitant]
     Route: 051
  8. FLUCONAZOLE [Concomitant]
     Dosage: 100 MILLIGRAM
     Route: 048
  9. PREVACID [Concomitant]
     Dosage: 30 MILLIGRAM
     Route: 048
  10. LISINOPRIL [Concomitant]
     Dosage: 10 MILLIGRAM
     Route: 048
  11. TYLENOL-500 [Concomitant]
     Indication: PAIN
     Dosage: 650 MILLIGRAM
     Route: 048
  12. ZOCOR [Concomitant]
     Dosage: 40 MILLIGRAM
     Route: 048
  13. FOLIC ACID [Concomitant]
     Dosage: 1 MILLIGRAM
     Route: 048
  14. REVLIMID [Suspect]
     Dosage: 10 MILLIGRAM
     Route: 048
     Dates: start: 20110309, end: 20110417
  15. TRAZODONE HCL [Concomitant]
     Dosage: 100 MILLIGRAM
     Route: 048
  16. ATENOLOL [Concomitant]
     Indication: BLOOD PRESSURE
     Dosage: 100 MILLIGRAM
     Route: 048
  17. CARDURA [Concomitant]
     Dosage: 4 MILLIGRAM
     Route: 048
  18. AMOXICILLIN [Concomitant]
     Indication: PROPHYLAXIS
     Dosage: 500 MILLIGRAM
     Route: 048
  19. HYDROCODONE BITARTRATE AND ACETAMINOPHEN [Concomitant]
     Dosage: 10-325MG
     Route: 048
  20. ZOVIRAX [Concomitant]
     Dosage: 5 PERCENT
     Route: 065

REACTIONS (3)
  - CELLULITIS [None]
  - CARDIAC FAILURE CONGESTIVE [None]
  - MYOCARDIAL INFARCTION [None]
